FAERS Safety Report 9951961 (Version 1)
Quarter: 2014Q1

REPORT INFORMATION
  Report Type: Report from Study
  Country: US (occurrence: US)
  Receive Date: 20140304
  Receipt Date: 20140304
  Transmission Date: 20141002
  Serious: No
  Sender: FDA-Public Use
  Company Number: US-ABBVIE-13P-163-1079805-00

PATIENT
  Age: 11 Year
  Sex: Female

DRUGS (6)
  1. HUMIRA [Suspect]
     Indication: JUVENILE IDIOPATHIC ARTHRITIS
     Route: 058
     Dates: start: 20130414
  2. NAPROXEN [Concomitant]
     Indication: JUVENILE IDIOPATHIC ARTHRITIS
     Dosage: 125MG/5ML
     Route: 048
  3. PREDNISONE [Concomitant]
     Indication: JUVENILE IDIOPATHIC ARTHRITIS
     Dosage: TAPERING DOSE
     Route: 048
  4. FUROSEMIDE [Concomitant]
     Indication: FALLOT^S TETRALOGY
  5. VITAMINS [Concomitant]
     Indication: VITAMIN SUPPLEMENTATION
     Dosage: DAILY
     Route: 048
  6. XOPENEX [Concomitant]
     Indication: ASTHMA
     Dosage: AS NEEDED
     Route: 055

REACTIONS (2)
  - Temperature difference of extremities [Not Recovered/Not Resolved]
  - Pain in extremity [Not Recovered/Not Resolved]
